FAERS Safety Report 18934849 (Version 1)
Quarter: 2021Q1

REPORT INFORMATION
  Report Type: Spontaneous
  Country: ES (occurrence: ES)
  Receive Date: 20210224
  Receipt Date: 20210224
  Transmission Date: 20210420
  Serious: Yes (Other)
  Sender: FDA-Public Use
  Company Number: ES-GLAXOSMITHKLINE-ES2021049535

PATIENT
  Sex: Female
  Weight: 67 kg

DRUGS (2)
  1. DUAC [Suspect]
     Active Substance: BENZOYL PEROXIDE\CLINDAMYCIN PHOSPHATE
     Indication: ACNE
     Dosage: UNK, QD (1 TIME A DAY AT NIGHT/10 MG/G +50 MG/G GEL , 1 TUBO DE 30 G)
     Route: 061
     Dates: start: 20210125
  2. ANACLOSIL [Concomitant]
     Indication: ACNE
     Dosage: 500 MG, QD (1 TIME A DAY/500 MG, 40 CAPSULE)
     Route: 065
     Dates: start: 20210125, end: 20210204

REACTIONS (3)
  - Pruritus [Not Recovered/Not Resolved]
  - Swelling face [Not Recovered/Not Resolved]
  - Skin burning sensation [Not Recovered/Not Resolved]

NARRATIVE: CASE EVENT DATE: 20210205
